FAERS Safety Report 11165675 (Version 3)
Quarter: 2015Q3

REPORT INFORMATION
  Report Type: Report from Study
  Country: CZ (occurrence: CZ)
  Receive Date: 20150604
  Receipt Date: 20150709
  Transmission Date: 20151125
  Serious: Yes (Death, Other)
  Sender: FDA-Public Use
  Company Number: CZ-ABBVIE-15P-217-1402395-00

PATIENT
  Sex: Male
  Weight: 57 kg

DRUGS (1)
  1. DUODOPA [Suspect]
     Active Substance: CARBIDOPA\LEVODOPA
     Indication: PARKINSON^S DISEASE
     Dosage: 7 ML/2.8 ML/ 1.5 ML
     Route: 065

REACTIONS (2)
  - Urinary tract infection [Unknown]
  - Urosepsis [Fatal]

NARRATIVE: CASE EVENT DATE: 20150601
